FAERS Safety Report 6214454-1 (Version None)
Quarter: 2009Q2

REPORT INFORMATION
  Report Type: 
  Country: None (occurrence: None)
  Receive Date: 20090602
  Receipt Date: 20090520
  Transmission Date: 20091009
  Serious: Yes (Death)
  Sender: FDA-Public Use
  Company Number: 006554

PATIENT

DRUGS (2)
  1. PLETAL [Suspect]
     Indication: ACUTE MYOCARDIAL INFARCTION
     Dosage: ORAL ; ORAL
     Route: 048
  2. ASPIRIN [Suspect]
     Indication: ACUTE MYOCARDIAL INFARCTION
     Dosage: ORAL
     Route: 048

REACTIONS (5)
  - ACUTE MYOCARDIAL INFARCTION [None]
  - CARDIAC DEATH [None]
  - CEREBROVASCULAR ACCIDENT [None]
  - HAEMORRHAGE [None]
  - THROMBOSIS IN DEVICE [None]
